FAERS Safety Report 8624138-8 (Version None)
Quarter: 2012Q3

REPORT INFORMATION
  Report Type: 
  Country: None (occurrence: None)
  Receive Date: 20120827
  Receipt Date: 20120816
  Transmission Date: 20120928
  Serious: Yes (Life-Threatening, Hospitalization)
  Sender: FDA-Public Use
  Company Number: CH-TEVA-354844ISR

PATIENT
  Age: 76 Year
  Sex: Male
  Weight: 88 kg

DRUGS (33)
  1. TRAMADOL HYDROCHLORIDE [Suspect]
     Route: 065
     Dates: start: 20120313, end: 20120314
  2. LASILACTON [Suspect]
     Dosage: 50 MILLIGRAM DAILY;
     Route: 048
     Dates: start: 20120407
  3. LYRICA [Concomitant]
     Dosage: 25 MILLIGRAM DAILY;
     Route: 048
     Dates: start: 20120313, end: 20120414
  4. KONAKION [Concomitant]
     Dosage: 10 MILLIGRAM DAILY;
     Route: 065
     Dates: start: 20120316, end: 20120329
  5. MORPHINE [Suspect]
     Dosage: 2%
     Route: 065
     Dates: start: 20120313
  6. DROPERIDOL [Concomitant]
     Route: 065
     Dates: start: 20120411, end: 20120421
  7. MOTILIUM [Concomitant]
     Dosage: 10 MILLIGRAM DAILY;
     Route: 048
     Dates: start: 20120412, end: 20120420
  8. LEVOTHYROXINE SODIUM [Concomitant]
     Route: 048
     Dates: start: 20120313
  9. ALLOPURINOL [Concomitant]
     Dosage: 300 MILLIGRAM DAILY;
     Route: 048
     Dates: start: 20120407
  10. KONAKION [Concomitant]
     Dosage: 10 MILLIGRAM DAILY;
     Route: 065
     Dates: start: 20120422, end: 20120423
  11. FOLVITE [Concomitant]
     Dosage: 1 MILLIGRAM DAILY;
     Route: 048
     Dates: start: 20120313
  12. NAVOBAN [Concomitant]
     Dosage: 5 MILLIGRAM DAILY;
     Route: 048
     Dates: start: 20120412, end: 20120416
  13. FRAGMIN [Concomitant]
     Route: 065
     Dates: start: 20120317, end: 20120407
  14. NITRODERM [Concomitant]
     Dosage: 25 MILLIGRAM DAILY; 1 PATCH IN TOTAL
     Route: 062
     Dates: start: 20120413
  15. TORSEMIDE [Interacting]
     Dosage: 10 MILLIGRAM DAILY;
     Route: 048
     Dates: start: 20120417
  16. LASIX [Suspect]
     Dosage: 40 MILLIGRAM DAILY;
     Route: 048
     Dates: start: 20120313, end: 20120407
  17. PERENTEROL [Concomitant]
     Dosage: 250 MILLIGRAM DAILY;
     Route: 048
     Dates: start: 20120414
  18. DURAGESIC-100 [Suspect]
     Route: 062
     Dates: start: 20120411, end: 20120419
  19. LASIX [Suspect]
     Dosage: 20 MILLIGRAM DAILY;
     Route: 048
     Dates: start: 20120409, end: 20120416
  20. NOVALGIN [Concomitant]
     Route: 048
     Dates: start: 20120411
  21. DIPIPERON [Concomitant]
     Dosage: 40 MILLIGRAM DAILY;
     Route: 048
     Dates: start: 20120313
  22. MARCUMAR [Concomitant]
     Route: 048
     Dates: start: 20120313
  23. ACETAMINOPHEN [Concomitant]
     Dosage: 1000 MILLIGRAM DAILY;
     Route: 048
     Dates: start: 20120419
  24. CEFEPIM [Suspect]
     Dosage: 6 GRAM DAILY;
     Route: 042
     Dates: start: 20120407, end: 20120421
  25. FRAGMIN [Concomitant]
     Route: 065
     Dates: start: 20120407, end: 20120421
  26. METOPROLOL TARTRATE [Concomitant]
     Route: 048
     Dates: start: 20120313
  27. IMODIUM [Concomitant]
     Dosage: 2 MILLIGRAM DAILY;
     Route: 048
     Dates: start: 20120410
  28. PANTOPRAZOLE [Concomitant]
     Dosage: 40 MILLIGRAM DAILY;
     Route: 065
     Dates: start: 20120422
  29. VANCOCIN HYDROCHLORIDE [Interacting]
     Dosage: 2 GRAM DAILY;
     Route: 042
     Dates: start: 20120407, end: 20120421
  30. CITALOPRAM HYDROBROMIDE [Suspect]
     Route: 048
     Dates: start: 20120403
  31. MOVIPREP [Concomitant]
     Dosage: 13.125 MILLIGRAM DAILY;
     Route: 048
     Dates: start: 20120313, end: 20120414
  32. COZAAR [Concomitant]
     Dosage: 50 MILLIGRAM DAILY;
     Route: 048
     Dates: start: 20120413, end: 20120419
  33. ONDANSETRON [Concomitant]
     Route: 048
     Dates: start: 20120412

REACTIONS (4)
  - DRUG LEVEL INCREASED [None]
  - MYOCLONUS [None]
  - RENAL FAILURE ACUTE [None]
  - DRUG INTERACTION [None]
